FAERS Safety Report 15917679 (Version 1)
Quarter: 2019Q1

REPORT INFORMATION
  Report Type: Spontaneous
  Country: MX (occurrence: MX)
  Receive Date: 20190205
  Receipt Date: 20190205
  Transmission Date: 20190417
  Serious: Yes (Hospitalization)
  Sender: FDA-Public Use
  Company Number: MX-SA-2019SA026631

PATIENT
  Age: 30 Month
  Sex: Male

DRUGS (1)
  1. ALLEGRA [Suspect]
     Active Substance: FEXOFENADINE HYDROCHLORIDE
     Indication: RESPIRATORY DISORDER
     Dosage: 2.5 ML, Q12H
     Route: 048
     Dates: start: 201901, end: 201901

REACTIONS (1)
  - Sedation [Recovered/Resolved]

NARRATIVE: CASE EVENT DATE: 201901
